FAERS Safety Report 14156582 (Version 4)
Quarter: 2017Q4

REPORT INFORMATION
  Report Type: Spontaneous
  Country: US (occurrence: US)
  Receive Date: 20171103
  Receipt Date: 20171128
  Transmission Date: 20180321
  Serious: Yes (Other)
  Sender: FDA-Public Use
  Company Number: US-009507513-1710USA013579

PATIENT
  Age: 22 Year
  Sex: Female

DRUGS (1)
  1. NEXPLANON [Suspect]
     Active Substance: ETONOGESTREL
     Dosage: 1 ROD, RIGHT ARM
     Route: 059
     Dates: start: 201512

REACTIONS (8)
  - Implant site pain [Unknown]
  - Unintended pregnancy [Not Recovered/Not Resolved]
  - Complication associated with device [Not Recovered/Not Resolved]
  - Device difficult to use [Not Recovered/Not Resolved]
  - Implant site hypoaesthesia [Unknown]
  - Pregnancy with implant contraceptive [Not Recovered/Not Resolved]
  - Implant site paraesthesia [Unknown]
  - Drug dose omission [Unknown]

NARRATIVE: CASE EVENT DATE: 201605
